FAERS Safety Report 19834254 (Version 2)
Quarter: 2021Q4

REPORT INFORMATION
  Report Type: Spontaneous
  Country: JP (occurrence: JP)
  Receive Date: 20210915
  Receipt Date: 20211004
  Transmission Date: 20220303
  Serious: Yes (Hospitalization, Other)
  Sender: FDA-Public Use
  Company Number: JP-SA-SAC20210914001401

PATIENT
  Sex: Female

DRUGS (4)
  1. OXALIPLATIN [Suspect]
     Active Substance: OXALIPLATIN
     Indication: Rectal cancer stage IV
     Dosage: UNK UNK, ONCE IN 2WEEKS
     Route: 041
  2. LEVOLEUCOVORIN CALCIUM [Suspect]
     Active Substance: LEVOLEUCOVORIN CALCIUM
     Indication: Rectal cancer stage IV
     Dosage: UNK
  3. FLUOROURACIL [Suspect]
     Active Substance: FLUOROURACIL
     Indication: Rectal cancer stage IV
  4. CETUXIMAB [Suspect]
     Active Substance: CETUXIMAB
     Indication: Rectal cancer stage IV
     Dosage: UNK

REACTIONS (6)
  - Incarcerated parastomal hernia [Recovered/Resolved]
  - Gastrointestinal stoma complication [Recovered/Resolved]
  - Stoma site pain [Recovered/Resolved]
  - Abdominal hernia [Recovered/Resolved]
  - Disease recurrence [Recovered/Resolved]
  - Impaired quality of life [Recovered/Resolved]
